FAERS Safety Report 4912383-4 (Version None)
Quarter: 2006Q1

REPORT INFORMATION
  Report Type: 
  Country: None (occurrence: None)
  Receive Date: 20060215
  Receipt Date: 20050208
  Transmission Date: 20060701
  Serious: No
  Sender: FDA-Public Use
  Company Number: US-GLAXOSMITHKLINE-A0544507A

PATIENT
  Age: 79 Year
  Sex: Male

DRUGS (5)
  1. VALTREX [Suspect]
     Dosage: 1000MG THREE TIMES PER DAY
     Route: 048
     Dates: start: 20050203
  2. PREVACID [Concomitant]
  3. ASPIRIN [Concomitant]
  4. BETAPACE [Concomitant]
  5. ZOCOR [Concomitant]

REACTIONS (4)
  - DRUG ADMINISTRATION ERROR [None]
  - INCREASED UPPER AIRWAY SECRETION [None]
  - PHARYNGOLARYNGEAL PAIN [None]
  - POLLAKIURIA [None]
